FAERS Safety Report 7262177-2 (Version None)
Quarter: 2011Q1

REPORT INFORMATION
  Report Type: 
  Country: None (occurrence: None)
  Receive Date: 20110120
  Receipt Date: 20110105
  Transmission Date: 20110831
  Serious: Yes (Other)
  Sender: FDA-Public Use
  Company Number: AUR-APL-2011-00085

PATIENT
  Sex: Male

DRUGS (3)
  1. PANTOPRAZOLE [Suspect]
     Dosage: 40MG-BID-ORAL
     Route: 048
     Dates: start: 20091001
  2. METOPROLOL TARTRATE [Suspect]
     Indication: CORONARY ARTERY OCCLUSION
  3. LOSARTAN POTASSIUM [Suspect]
     Indication: CORONARY ARTERY OCCLUSION

REACTIONS (4)
  - ABDOMINAL PAIN UPPER [None]
  - HEADACHE [None]
  - CORONARY ARTERY OCCLUSION [None]
  - DRUG INEFFECTIVE [None]
